FAERS Safety Report 6880546-7 (Version None)
Quarter: 2010Q3

REPORT INFORMATION
  Report Type: 
  Country: None (occurrence: None)
  Receive Date: 20100728
  Receipt Date: 20100714
  Transmission Date: 20110219
  Serious: Yes (Death, Other)
  Sender: FDA-Public Use
  Company Number: US-GENZYME-CLOF-1001082

PATIENT

DRUGS (8)
  1. CLOLAR [Suspect]
     Indication: ACUTE MYELOID LEUKAEMIA
     Dosage: 52 MG/M2, QDX5
     Route: 042
  2. CLOLAR [Suspect]
     Route: 042
  3. CLOLAR [Suspect]
     Route: 042
  4. CLOLAR [Suspect]
     Route: 042
  5. CLOLAR [Suspect]
     Route: 042
  6. CLOLAR [Suspect]
     Route: 042
  7. CLOLAR [Suspect]
     Route: 042
  8. CLOLAR [Suspect]
     Route: 042

REACTIONS (2)
  - MALIGNANT NEOPLASM PROGRESSION [None]
  - THROMBOCYTOPENIA [None]
